FAERS Safety Report 18295456 (Version 2)
Quarter: 2021Q2

REPORT INFORMATION
  Report Type: Spontaneous
  Country: CA (occurrence: CA)
  Receive Date: 20200922
  Receipt Date: 20210617
  Transmission Date: 20210717
  Serious: Yes (Death, Other)
  Sender: FDA-Public Use
  Company Number: CA-PFIZER INC-2020266438

PATIENT
  Age: 85 Year
  Sex: Female

DRUGS (1)
  1. XELJANZ XR [Suspect]
     Active Substance: TOFACITINIB CITRATE
     Indication: RHEUMATOID ARTHRITIS
     Dosage: 11 MG, DAILY (OD)
     Route: 048
     Dates: start: 20200610

REACTIONS (4)
  - Cardiac valve disease [Recovered/Resolved]
  - Drug ineffective [Unknown]
  - Dizziness [Recovering/Resolving]
  - Death [Fatal]
